FAERS Safety Report 15030490 (Version 2)
Quarter: 2018Q2

REPORT INFORMATION
  Report Type: Spontaneous
  Country: FR (occurrence: FR)
  Receive Date: 20180619
  Receipt Date: 20180622
  Transmission Date: 20180711
  Serious: Yes (Death, Hospitalization, Other)
  Sender: FDA-Public Use
  Company Number: FR-JAZZ-2018-FR-009604

PATIENT
  Age: 50 Year

DRUGS (1)
  1. DEFITELIO [Suspect]
     Active Substance: DEFIBROTIDE SODIUM
     Indication: PRODUCT USED FOR UNKNOWN INDICATION

REACTIONS (8)
  - Death [Fatal]
  - Histiocytosis haematophagic [Unknown]
  - Pyelonephritis [Unknown]
  - Pancytopenia [Unknown]
  - Epstein-Barr virus infection [Unknown]
  - Multiple organ dysfunction syndrome [Unknown]
  - Acute respiratory distress syndrome [Unknown]
  - Angina unstable [Unknown]

NARRATIVE: CASE EVENT DATE: 20170712
